FAERS Safety Report 19803759 (Version 1)
Quarter: 2021Q3

REPORT INFORMATION
  Report Type: Spontaneous
  Country: US (occurrence: US)
  Receive Date: 20210908
  Receipt Date: 20210908
  Transmission Date: 20211014
  Serious: Yes (Other)
  Sender: FDA-Public Use
  Company Number: US-SUN PHARMACEUTICAL INDUSTRIES LTD-2021R1-310437

PATIENT
  Age: 52 Year
  Sex: Female

DRUGS (2)
  1. PREDNISONE. [Suspect]
     Active Substance: PREDNISONE
     Indication: GRANULOMA ANNULARE
     Dosage: UNK
     Route: 048
  2. CLOBETASOL [Suspect]
     Active Substance: CLOBETASOL
     Indication: GRANULOMA ANNULARE
     Dosage: UNK
     Route: 061

REACTIONS (1)
  - Treatment failure [Unknown]
